FAERS Safety Report 7420423 (Version 2)
Quarter: 2014Q3

REPORT INFORMATION
  Report Type: Spontaneous
  Country: US (occurrence: None)
  Receive Date: 20100608
  Receipt Date: 20140922
  Transmission Date: 20150326
  Serious: Yes (Other)
  Sender: FDA-Public Use
  Company Number: 2010S1003544

PATIENT
  Age: 60 Year
  Sex: Male
  Weight: 86.18 kg

DRUGS (6)
  1. PHOSPHO-SODA [Suspect]
     Active Substance: SODIUM PHOSPHATE, DIBASIC\SODIUM PHOSPHATE, MONOBASIC
     Indication: COLONOSCOPY
     Dosage: PO
     Route: 048
     Dates: start: 20050307, end: 20050307
  2. TOPROL (METOPROLOL SUCCINATE) [Concomitant]
  3. ZESTRIL (LISINOPRIL) [Concomitant]
  4. AMARYL [Concomitant]
     Active Substance: GLIMEPIRIDE
  5. HYDROCHLOROTHIAZIDE. [Concomitant]
     Active Substance: HYDROCHLOROTHIAZIDE
  6. ASPIRIN (ACETYLSALICYLIC ACID) [Concomitant]
     Active Substance: ASPIRIN

REACTIONS (4)
  - Hyperparathyroidism secondary [None]
  - Renal failure chronic [None]
  - Nephrogenic anaemia [None]
  - Renal failure [None]

NARRATIVE: CASE EVENT DATE: 20050922
